FAERS Safety Report 20942229 (Version 1)
Quarter: 2022Q2

REPORT INFORMATION
  Report Type: Spontaneous
  Country: GB (occurrence: GB)
  Receive Date: 20220610
  Receipt Date: 20220610
  Transmission Date: 20220721
  Serious: Yes (Hospitalization)
  Sender: FDA-Public Use
  Company Number: GB-STRIDES ARCOLAB LIMITED-2022SP006883

PATIENT
  Age: 6 Decade
  Sex: Male

DRUGS (2)
  1. PROPRANOLOL [Suspect]
     Active Substance: PROPRANOLOL HYDROCHLORIDE
     Indication: Portal hypertension
     Dosage: 80 MILLIGRAM
     Route: 065
  2. PROPRANOLOL [Suspect]
     Active Substance: PROPRANOLOL HYDROCHLORIDE
     Dosage: 20 MILLIGRAM, BID
     Route: 065

REACTIONS (6)
  - Respiratory failure [Recovered/Resolved]
  - Pulmonary hypertension [Recovered/Resolved]
  - Cardiomegaly [Recovered/Resolved]
  - Splenomegaly [Recovered/Resolved]
  - Pulmonary valve incompetence [Recovered/Resolved]
  - Tricuspid valve incompetence [Recovered/Resolved]
